FAERS Safety Report 6590490-0 (Version None)
Quarter: 2010Q1

REPORT INFORMATION
  Report Type: 
  Country: None (occurrence: None)
  Receive Date: 20100219
  Receipt Date: 20100208
  Transmission Date: 20100710
  Serious: Yes (Hospitalization)
  Sender: FDA-Public Use
  Company Number: US-ELI_LILLY_AND_COMPANY-US201002003317

PATIENT
  Age: 53 Year
  Sex: Male

DRUGS (3)
  1. CYMBALTA [Suspect]
     Indication: FIBROMYALGIA
     Dosage: 120 MG, UNK
     Dates: start: 20091101
  2. CYMBALTA [Suspect]
     Dosage: 30 MG, UNK
  3. FENTANYL-100 [Concomitant]

REACTIONS (2)
  - CEREBROVASCULAR ACCIDENT [None]
  - DRUG INTERACTION [None]
